FAERS Safety Report 23099094 (Version 1)
Quarter: 2023Q4

REPORT INFORMATION
  Report Type: Spontaneous
  Country: US (occurrence: US)
  Receive Date: 20231024
  Receipt Date: 20231024
  Transmission Date: 20240109
  Serious: Yes (Other)
  Sender: FDA-Public Use
  Company Number: US-20231016-803825543

PATIENT
  Age: 44 Year
  Sex: Female

DRUGS (5)
  1. BELINOSTAT [Suspect]
     Active Substance: BELINOSTAT
     Indication: Chondrosarcoma
     Dosage: UNK
     Route: 065
     Dates: start: 202102
  2. GUADECITABINE [Suspect]
     Active Substance: GUADECITABINE
     Indication: Chondrosarcoma
     Dosage: UNK
     Route: 065
     Dates: start: 202102
  3. IVOSIDENIB [Suspect]
     Active Substance: IVOSIDENIB
     Indication: Chondrosarcoma
     Dosage: 500 MILLIGRAM, ONCE A DAY
     Route: 048
  4. IGM-8444 [Suspect]
     Active Substance: IGM-8444
     Indication: Chondrosarcoma
     Dosage: 6 CYCLES
     Route: 065
  5. PAZOPANIB [Suspect]
     Active Substance: PAZOPANIB
     Indication: Chondrosarcoma
     Dosage: 800 MILLIGRAM, ONCE A DAY
     Route: 048

REACTIONS (1)
  - Treatment failure [Unknown]
